FAERS Safety Report 7335427-1 (Version None)
Quarter: 2011Q1

REPORT INFORMATION
  Report Type: 
  Country: None (occurrence: None)
  Receive Date: 20110307
  Receipt Date: 20110301
  Transmission Date: 20110831
  Serious: Yes (Death, Other)
  Sender: FDA-Public Use
  Company Number: JP-BAYER-200912840BYL

PATIENT
  Sex: Male
  Weight: 48.073 kg

DRUGS (23)
  1. MORPHINE HYDROCHLORIDE [Concomitant]
     Dosage: 360 MG (DAILY DOSE), , ORAL
     Route: 048
     Dates: start: 20090807, end: 20090914
  2. MORPHINE HYDROCHLORIDE [Concomitant]
     Dosage: DAILY DOSE 240 MG
     Route: 048
     Dates: end: 20090806
  3. GABAPENTIN [Concomitant]
     Dosage: 1800 MG (DAILY DOSE), , ORAL
     Route: 048
     Dates: start: 20091210
  4. NEXAVAR [Suspect]
     Indication: HEPATIC NEOPLASM MALIGNANT
     Route: 048
     Dates: start: 20090724, end: 20090731
  5. OXYCONTIN [Concomitant]
     Dosage: 320 MG (DAILY DOSE), , ORAL
     Route: 048
     Dates: start: 20091210
  6. NEXAVAR [Suspect]
     Dosage: 400 MG (DAILY DOSE), , ORAL
     Route: 048
     Dates: start: 20090824, end: 20090902
  7. MEILAX [Concomitant]
     Dosage: SINCE BEFORE ADMINISTRATION
     Route: 048
  8. NAIXAN [Concomitant]
     Dosage: SINCE BEFORE ADMINISTRATION
     Route: 048
  9. MYSLEE [Concomitant]
     Dosage: SINCE BEFORE ADMINISTRATION
     Route: 048
  10. KADIAN [Concomitant]
     Dosage: 480 MG (DAILY DOSE), , ORAL
     Route: 048
     Dates: start: 20091120, end: 20091210
  11. DUROTEP [Concomitant]
     Dosage: 2.1 MG (DAILY DOSE), , TRANSDERMAL
     Route: 062
     Dates: start: 20091210
  12. TAKEPRON [Concomitant]
     Indication: PROPHYLAXIS
     Dosage: 15 MG (DAILY DOSE), , ORAL
     Route: 048
     Dates: start: 20091225
  13. NEXAVAR [Suspect]
     Dosage: 800MG/DAY AND 400MG/DAY
     Route: 048
     Dates: start: 20090902, end: 20091025
  14. KADIAN [Concomitant]
     Dosage: 390 MG (DAILY DOSE), , ORAL
     Route: 048
     Dates: start: 20090914, end: 20090917
  15. KADIAN [Concomitant]
     Dosage: 240 MG (DAILY DOSE), , ORAL
     Route: 048
     Dates: start: 20091210
  16. OPSO [Concomitant]
     Dosage: SINCE BEFORE ADMINISTRATION
     Route: 048
  17. NEXAVAR [Suspect]
     Dosage: 200 MG (DAILY DOSE), , ORAL
     Route: 048
     Dates: start: 20091106, end: 20100324
  18. HIRUDOID [Concomitant]
     Indication: PROPHYLAXIS
     Route: 061
     Dates: start: 20090724
  19. KADIAN [Concomitant]
     Dosage: 420 MG (DAILY DOSE), , ORAL
     Route: 048
     Dates: start: 20090917, end: 20091119
  20. NAIXAN [Concomitant]
     Dosage: 400 MG (DAILY DOSE), , ORAL
     Route: 048
     Dates: start: 20090807, end: 20091224
  21. NAIXAN [Concomitant]
     Dosage: 600 MG (DAILY DOSE), , ORAL
     Route: 048
     Dates: start: 20091225
  22. MAGNESIUM OXIDE [Concomitant]
     Dosage: SINCE BEFORE ADMINISTRATION
     Route: 048
  23. GABAPENTIN [Concomitant]
     Dosage: 1200 MG (DAILY DOSE), , ORAL
     Route: 048
     Dates: start: 20090917, end: 20091209

REACTIONS (6)
  - ALOPECIA [None]
  - HEPATIC NEOPLASM MALIGNANT [None]
  - MELAENA [None]
  - C-REACTIVE PROTEIN INCREASED [None]
  - HEPATIC FUNCTION ABNORMAL [None]
  - TUMOUR LYSIS SYNDROME [None]
